FAERS Safety Report 9796300 (Version 1)
Quarter: 2014Q1

REPORT INFORMATION
  Report Type: Spontaneous
  Country: JP (occurrence: JP)
  Receive Date: 20140103
  Receipt Date: 20140103
  Transmission Date: 20141002
  Serious: Yes (Hospitalization)
  Sender: FDA-Public Use
  Company Number: JP-CUBIST PHARMACEUTICAL, INC.-2013CBST001419

PATIENT
  Sex: 0

DRUGS (2)
  1. CUBICIN [Suspect]
     Indication: STAPHYLOCOCCAL SKIN INFECTION
     Dosage: 4 MG/KG, QD, 30 MIN. INFUSION
     Route: 041
  2. CUBICIN [Suspect]
     Indication: SOFT TISSUE INFECTION

REACTIONS (1)
  - Anaphylactic shock [Recovered/Resolved]
